FAERS Safety Report 15030216 (Version 5)
Quarter: 2018Q3

REPORT INFORMATION
  Report Type: Spontaneous
  Country: ES (occurrence: ES)
  Receive Date: 20180619
  Receipt Date: 20180820
  Transmission Date: 20181010
  Serious: Yes (Hospitalization, Other)
  Sender: FDA-Public Use
  Company Number: ES-PFIZER INC-2018245458

PATIENT
  Age: 67 Year
  Sex: Male

DRUGS (9)
  1. BIPERIDEN [Interacting]
     Active Substance: BIPERIDEN
     Indication: EXTRAPYRAMIDAL DISORDER
  2. DIAZEPAM. [Interacting]
     Active Substance: DIAZEPAM
     Dosage: 7.5 MG, UNK (7.5 MG MORE OF DIAZEPAM WAS ADMINISTERED)
     Dates: start: 201612
  3. BIPERIDEN [Interacting]
     Active Substance: BIPERIDEN
     Indication: SCHIZOPHRENIA
     Dosage: 1 DF, 1X/DAY (1 TABLET EVERY 24 HOURS)
  4. QUETIAPINE. [Interacting]
     Active Substance: QUETIAPINE
     Indication: SCHIZOPHRENIA
     Dosage: 1 DF, 1X/DAY (1 TABLET EVERY 24 HOURS, FOR 6 YEARS UP TO DATE)
  5. BIPERIDEN [Interacting]
     Active Substance: BIPERIDEN
     Indication: EXTRAPYRAMIDAL DISORDER
     Dosage: 8 MG, 1X/DAY (BE INCREASED FOR 4 DAYS)
     Route: 048
     Dates: start: 201612
  6. DIAZEPAM. [Interacting]
     Active Substance: DIAZEPAM
     Indication: EXTRAPYRAMIDAL DISORDER
     Dosage: 5 MG, 1X/DAY
     Dates: start: 201612
  7. ATORVASTATIN CALCIUM. [Suspect]
     Active Substance: ATORVASTATIN CALCIUM
     Indication: DYSLIPIDAEMIA
     Dosage: 10 MG, 1X/DAY
     Dates: start: 201305
  8. BIPERIDEN [Interacting]
     Active Substance: BIPERIDEN
     Indication: SCHIZOPHRENIA
     Dosage: 5 MG, UNK (1 VIAL OF 5 MG, EVERY 4 WEEKS ,FOR 6 YEARS UP TO DATE)
  9. FLUPHENAZINE DECANOATE. [Interacting]
     Active Substance: FLUPHENAZINE DECANOATE
     Indication: SCHIZOPHRENIA
     Dosage: 25 MG, UNK (FOR 6 YEARS UP TO DATE (1 VIAL OF 25 MG EVERY 4 WEEKS))

REACTIONS (4)
  - Drug interaction [Recovered/Resolved]
  - Rhabdomyolysis [Recovered/Resolved]
  - Myopathy toxic [Recovered/Resolved]
  - Toxicity to various agents [Recovered/Resolved]

NARRATIVE: CASE EVENT DATE: 201612
